FAERS Safety Report 11100284 (Version 3)
Quarter: 2015Q3

REPORT INFORMATION
  Report Type: Report from Study
  Country: DE (occurrence: DE)
  Receive Date: 20150508
  Receipt Date: 20150922
  Transmission Date: 20151125
  Serious: Yes (Hospitalization)
  Sender: FDA-Public Use
  Company Number: DE-BAYER-2015-184665

PATIENT
  Age: 53 Year
  Sex: Male

DRUGS (4)
  1. FENTANYL. [Concomitant]
     Active Substance: FENTANYL
     Dosage: 30 ?G/DAY
     Dates: start: 20150320
  2. METRONIDAZOL [Concomitant]
     Active Substance: METRONIDAZOLE
     Dosage: DAILY DOSE 400 MG
     Dates: start: 2015, end: 20150630
  3. CLEXANE [Concomitant]
     Active Substance: ENOXAPARIN SODIUM
     Indication: THROMBOSIS PROPHYLAXIS
     Dosage: 0.8 ML/DAY
     Dates: start: 20150306
  4. STIVARGA [Suspect]
     Active Substance: REGORAFENIB
     Indication: COLORECTAL CANCER
     Dosage: UNK
     Route: 048
     Dates: end: 20150415

REACTIONS (1)
  - Deep vein thrombosis [Recovered/Resolved]

NARRATIVE: CASE EVENT DATE: 20150423
